FAERS Safety Report 7655440-4 (Version None)
Quarter: 2011Q3

REPORT INFORMATION
  Report Type: 
  Country: None (occurrence: None)
  Receive Date: 20110804
  Receipt Date: 20110722
  Transmission Date: 20111222
  Serious: Yes (Hospitalization, Other)
  Sender: FDA-Public Use
  Company Number: US-JNJFOC-20091201607

PATIENT
  Sex: Female
  Weight: 63.05 kg

DRUGS (16)
  1. ADVAIR DISKUS 100/50 [Concomitant]
     Indication: ASTHMA
     Dates: start: 20010101
  2. SYNTHROID [Concomitant]
     Indication: HYPOTHYROIDISM
     Dates: start: 19930101
  3. RELISTOR [Suspect]
     Indication: CONSTIPATION
     Route: 058
     Dates: start: 20090904
  4. GLUCOSE [Concomitant]
  5. MIDAZOLAM HYDROCHLORIDE [Concomitant]
  6. IBUPROFEN [Suspect]
     Indication: MUSCULOSKELETAL PAIN
     Dates: start: 20070101
  7. PROTONIX [Concomitant]
     Indication: GASTROOESOPHAGEAL REFLUX DISEASE
     Dates: start: 20060101
  8. CYMBALTA [Concomitant]
     Indication: DEPRESSION
     Dates: start: 20060101
  9. GOLYTELY(MACROGOL/POTASSIUM CHL/SODIUM BICARB/SODIUM CHL/SODIUM SUL) [Concomitant]
  10. ASPIRIN [Suspect]
     Indication: CARDIOVASCULAR EVENT PROPHYLAXIS
     Dates: start: 19980101
  11. PHYTONADIONE [Concomitant]
  12. OMEPRAZOLE [Concomitant]
  13. THEO-DUR [Concomitant]
     Indication: ASTHMA
     Dates: start: 19840101
  14. FOSAMAX [Concomitant]
     Indication: OSTEOPOROSIS
     Dates: start: 20070101
  15. SODIUM CHLORIDE [Concomitant]
  16. MEPERIDINE HCL [Concomitant]

REACTIONS (2)
  - SYNCOPE [None]
  - LOWER GASTROINTESTINAL HAEMORRHAGE [None]
